FAERS Safety Report 13483832 (Version 1)
Quarter: 2017Q2

REPORT INFORMATION
  Report Type: Spontaneous
  Country: US (occurrence: US)
  Receive Date: 20170425
  Receipt Date: 20170425
  Transmission Date: 20170830
  Serious: Yes (Other)
  Sender: FDA-Public Use
  Company Number: None

PATIENT
  Age: 54 Year
  Sex: Female
  Weight: 72 kg

DRUGS (3)
  1. PROZAC [Concomitant]
     Active Substance: FLUOXETINE HYDROCHLORIDE
  2. TECFIDERA [Concomitant]
     Active Substance: DIMETHYL FUMARATE
  3. LEVOFLOXIN [Suspect]
     Active Substance: LEVOFLOXACIN
     Indication: URINARY TRACT INFECTION
     Dosage: ?          QUANTITY:1 TABLET(S);?
     Route: 048

REACTIONS (6)
  - Myalgia [None]
  - Dizziness [None]
  - Diarrhoea [None]
  - Musculoskeletal pain [None]
  - Musculoskeletal disorder [None]
  - Nausea [None]

NARRATIVE: CASE EVENT DATE: 20170412
